FAERS Safety Report 6338462-5 (Version None)
Quarter: 2009Q3

REPORT INFORMATION
  Report Type: 
  Country: None (occurrence: None)
  Receive Date: 20090901
  Receipt Date: 20090817
  Transmission Date: 20100115
  Serious: Yes (Death)
  Sender: FDA-Public Use
  Company Number: 2008AL011261

PATIENT
  Age: 71 Year
  Sex: Male

DRUGS (80)
  1. DIGOXIN [Suspect]
     Dosage: 0.25MG, DAILY, PO
     Route: 048
     Dates: start: 20020409, end: 20080131
  2. DIGOXIN [Suspect]
     Dosage: 0.125MG, DAILY, PO
     Route: 048
  3. PRINIVIL [Concomitant]
  4. AVANDIA [Concomitant]
  5. COUMADIN [Concomitant]
  6. TRIMOX [Concomitant]
  7. METFORMIN HCL [Concomitant]
  8. FUROSEMIDE [Concomitant]
  9. METOPROLOL TARTRATE [Concomitant]
  10. LISINOPRIL [Concomitant]
  11. KENALOG AEROSOL [Concomitant]
  12. METOLAZONE [Concomitant]
  13. INSPRA [Concomitant]
  14. NITROGLYCERIN [Concomitant]
  15. HYDROCHLOROTHIAZIDE [Concomitant]
  16. POTASSIUM CHLORIDE [Concomitant]
  17. CHLORHEXIDINE GLUCONATE [Concomitant]
  18. OSMOPREP [Concomitant]
  19. AMIODARONE HCL [Concomitant]
  20. NOVOLIN R [Concomitant]
  21. SIMVASTATIN [Concomitant]
  22. GLIPIZIDE [Concomitant]
  23. TOPROL-XL [Concomitant]
  24. SPIRONOLACTONE [Concomitant]
  25. NEXIUM [Concomitant]
  26. OSMOPREP [Concomitant]
  27. AMIODARONE HCL [Concomitant]
  28. AZITHROMYCIN [Concomitant]
  29. AMOXICILLIN [Concomitant]
  30. TRIMOX [Concomitant]
  31. AVANDIA [Concomitant]
  32. OXYCODONE HCL AND ACETAMINOPHEN [Concomitant]
  33. CLOTRIMAZOLE [Concomitant]
  34. LANTUS [Concomitant]
  35. LEGEND STOOL SOFTENER [Concomitant]
  36. GLUCOVANCE ZOCOR [Concomitant]
  37. PRINIVIL [Concomitant]
  38. NYSTOP [Concomitant]
  39. ADVAIR HFA [Concomitant]
  40. ALLEGRA [Concomitant]
  41. ENALAPRIL MALEATE [Concomitant]
  42. HYDRALAZINE HCL [Concomitant]
  43. CEFTIN [Concomitant]
  44. SUCRALFATE [Concomitant]
  45. TEQUIIN [Concomitant]
  46. HYDROPANE [Concomitant]
  47. FLOVENT [Concomitant]
  48. SEREVENT [Concomitant]
  49. PREDNISONE TAB [Concomitant]
  50. GUIATUSS [Concomitant]
  51. LEVAQUIN [Concomitant]
  52. FLOXIN [Concomitant]
  53. PRILOSEC [Concomitant]
  54. COREG [Concomitant]
  55. AMOXIL [Concomitant]
  56. GLYBURIDE [Concomitant]
  57. DIOVAN [Concomitant]
  58. MONOPRIL [Concomitant]
  59. COZAAR [Concomitant]
  60. CEPHALEXIN [Concomitant]
  61. K-DUR [Concomitant]
  62. DIPYRIDAMOLE [Concomitant]
  63. CIPRO [Concomitant]
  64. NIZORAL [Concomitant]
  65. DURICEF [Concomitant]
  66. NORVASC [Concomitant]
  67. MICRONASE [Concomitant]
  68. BENZASHAVE [Concomitant]
  69. CARDIZEM [Concomitant]
  70. HYDROCORTISONE [Concomitant]
  71. HYTONE [Concomitant]
  72. CORGARD [Concomitant]
  73. NITROGLYCERIN [Concomitant]
  74. NITRO-DUR [Concomitant]
  75. NITROSTAT [Concomitant]
  76. TICLID [Concomitant]
  77. HYDROCODONE BITARTRATE + ACETAMINOPHEN [Concomitant]
  78. ERYTHROCIN LACTOBIONATE [Concomitant]
  79. SULFAMETHOXAZOLE [Concomitant]
  80. ALBUTEROL [Concomitant]

REACTIONS (18)
  - ANHEDONIA [None]
  - CARDIAC FAILURE CONGESTIVE [None]
  - CARDIO-RESPIRATORY ARREST [None]
  - CARDIOGENIC SHOCK [None]
  - CHEST PAIN [None]
  - CORONARY ARTERY DISEASE [None]
  - DYSPNOEA [None]
  - ECONOMIC PROBLEM [None]
  - EMOTIONAL DISORDER [None]
  - EMOTIONAL DISTRESS [None]
  - EXPOSURE TO TOXIC AGENT [None]
  - HYPERHIDROSIS [None]
  - MENTAL DISORDER [None]
  - MULTIPLE INJURIES [None]
  - PAIN [None]
  - PALPITATIONS [None]
  - SYNCOPE [None]
  - UNEVALUABLE EVENT [None]
